FAERS Safety Report 5064361-5 (Version None)
Quarter: 2006Q3

REPORT INFORMATION
  Report Type: 
  Country: None (occurrence: None)
  Receive Date: 20060706
  Receipt Date: 20060504
  Transmission Date: 20061208
  Serious: No
  Sender: FDA-Public Use
  Company Number: 200512126BWH

PATIENT
  Age: 74 Year
  Sex: Male

DRUGS (7)
  1. LEVITRA [Suspect]
     Indication: ERECTILE DYSFUNCTION
     Dosage: SEE IMAGE
     Route: 048
  2. LEVITRA [Suspect]
  3. PSYCHIATRIC MEDICATION [Concomitant]
  4. WELLBUTRIN [Concomitant]
  5. CLONAZEPAM [Concomitant]
  6. TRAZODONE HCL [Concomitant]
  7. OMEPRAZOLE [Concomitant]

REACTIONS (2)
  - DRUG INEFFECTIVE [None]
  - ERECTILE DYSFUNCTION [None]
